FAERS Safety Report 24652198 (Version 1)
Quarter: 2024Q4

REPORT INFORMATION
  Report Type: Spontaneous
  Country: US (occurrence: US)
  Receive Date: 20241122
  Receipt Date: 20241122
  Transmission Date: 20250114
  Serious: No
  Sender: PFIZER
  Company Number: US-PFIZER INC-202400303196

PATIENT
  Age: 77 Year
  Sex: Female
  Weight: 79.38 kg

DRUGS (3)
  1. SOMATROPIN [Suspect]
     Active Substance: SOMATROPIN
     Indication: Growth hormone deficiency
     Dosage: 0.3 MG, 1X/DAY
  2. LISINOPRIL [Concomitant]
     Active Substance: LISINOPRIL
     Indication: Blood pressure abnormal
     Dosage: UNK
  3. ATROPINE [Concomitant]
     Active Substance: ATROPINE
     Indication: Blood pressure abnormal
     Dosage: UNK

REACTIONS (5)
  - Drug dose omission by device [Unknown]
  - Product communication issue [Unknown]
  - Device occlusion [Unknown]
  - Needle issue [Unknown]
  - Device malfunction [Unknown]
